FAERS Safety Report 10062303 (Version 1)
Quarter: 2014Q2

REPORT INFORMATION
  Report Type: Spontaneous
  Country: GB (occurrence: GB)
  Receive Date: 20140407
  Receipt Date: 20140407
  Transmission Date: 20141212
  Serious: Yes (Hospitalization)
  Sender: FDA-Public Use
  Company Number: GB-ASTRAZENECA-2014SE22606

PATIENT
  Age: 24 Year
  Sex: Female

DRUGS (2)
  1. BUPIVACAINE [Suspect]
     Indication: EPIDURAL ANALGESIA
     Dosage: 20 ML LOADING DOSE
  2. FENTANYL [Suspect]
     Indication: EPIDURAL ANALGESIA
     Dosage: 20 MCG/ML LOADING DOSE

REACTIONS (1)
  - Stroke volume decreased [Not Recovered/Not Resolved]
